FAERS Safety Report 15554637 (Version 1)
Quarter: 2018Q4

REPORT INFORMATION
  Report Type: Spontaneous
  Country: US (occurrence: US)
  Receive Date: 20181022
  Receipt Date: 20181022
  Transmission Date: 20190205
  Serious: No
  Sender: FDA-Public Use
  Company Number: None

PATIENT
  Age: 56 Year
  Sex: Male
  Weight: 74 kg

DRUGS (2)
  1. BACLOFEN. [Suspect]
     Active Substance: BACLOFEN
     Indication: MUSCLE SPASMS
     Route: 048
     Dates: start: 20180614, end: 20180616
  2. ACETAMINOPHEN AND CODEINE [Suspect]
     Active Substance: ACETAMINOPHEN\CODEINE PHOSPHATE
     Dates: start: 20180614, end: 20180616

REACTIONS (12)
  - Emotional distress [None]
  - Areflexia [None]
  - Pupil fixed [None]
  - Self-medication [None]
  - Disorientation [None]
  - Muscle spasticity [None]
  - Hypoxia [None]
  - Hypertension [None]
  - Somnolence [None]
  - Toxicity to various agents [None]
  - Agitation [None]
  - Unresponsive to stimuli [None]

NARRATIVE: CASE EVENT DATE: 20180616
